FAERS Safety Report 18142255 (Version 1)
Quarter: 2020Q3

REPORT INFORMATION
  Report Type: Report from Study
  Country: GB (occurrence: GB)
  Receive Date: 20200812
  Receipt Date: 20200812
  Transmission Date: 20201103
  Serious: Yes (Other)
  Sender: FDA-Public Use
  Company Number: NVSC2020GB215981

PATIENT
  Sex: Female

DRUGS (1)
  1. ERELZI [Suspect]
     Active Substance: ETANERCEPT-SZZS
     Indication: RHEUMATOID ARTHRITIS
     Dosage: 50 MG, QW
     Route: 058

REACTIONS (5)
  - Cerebrovascular accident [Recovered/Resolved with Sequelae]
  - Pain in extremity [Unknown]
  - Arthralgia [Unknown]
  - Visual impairment [Recovered/Resolved with Sequelae]
  - Neck pain [Unknown]
